FAERS Safety Report 5853635-3 (Version None)
Quarter: 2008Q3

REPORT INFORMATION
  Report Type: 
  Country: None (occurrence: None)
  Receive Date: 20080822
  Receipt Date: 20080812
  Transmission Date: 20090109
  Serious: Yes (Hospitalization)
  Sender: FDA-Public Use
  Company Number: GR-NOVOPROD-276523

PATIENT
  Sex: Female
  Weight: 71 kg

DRUGS (7)
  1. NOVOLOG MIX 70/30 [Suspect]
     Indication: DIABETES MELLITUS
     Dosage: 60 IU, QD
     Route: 058
     Dates: start: 20080307, end: 20080602
  2. NOVOLOG MIX 70/30 [Suspect]
     Dosage: 38 IU, UNK
     Dates: start: 20080606
  3. METFORMIN [Concomitant]
     Dosage: 850 MG, QD
     Route: 048
  4. FUROSEMIDE [Concomitant]
     Dosage: 40 MG, QD
     Route: 048
  5. THYROXINE [Concomitant]
     Dosage: .1 MG, QD
     Route: 048
  6. CARVEDILOL [Concomitant]
     Dosage: 25 MG, QD
     Route: 048
  7. ESCITALOPRAM [Concomitant]
     Indication: DEPRESSION

REACTIONS (2)
  - GLYCOSYLATED HAEMOGLOBIN INCREASED [None]
  - HYPOGLYCAEMIA [None]
